FAERS Safety Report 7761173-6 (Version None)
Quarter: 2011Q3

REPORT INFORMATION
  Report Type: 
  Country: None (occurrence: None)
  Receive Date: 20110920
  Receipt Date: 20110908
  Transmission Date: 20111222
  Serious: Yes (Hospitalization)
  Sender: FDA-Public Use
  Company Number: US-BAYER-2011-024070

PATIENT
  Age: 43 Year
  Sex: Female
  Weight: 57 kg

DRUGS (1)
  1. YAZ [Suspect]
     Indication: MENSTRUAL CYCLE MANAGEMENT
     Dosage: UNK
     Route: 048
     Dates: start: 20090504, end: 20090507

REACTIONS (8)
  - DYSPNOEA [None]
  - PAIN [None]
  - MUSCULOSKELETAL STIFFNESS [None]
  - EMOTIONAL DISTRESS [None]
  - PULMONARY EMBOLISM [None]
  - MENTAL DISORDER [None]
  - FEAR [None]
  - INJURY [None]
